FAERS Safety Report 7468418-0 (Version None)
Quarter: 2011Q2

REPORT INFORMATION
  Report Type: 
  Country: None (occurrence: None)
  Receive Date: 20110509
  Receipt Date: 20110503
  Transmission Date: 20111010
  Serious: Yes (Hospitalization, Other)
  Sender: FDA-Public Use
  Company Number: DE-AMGEN-DEUSP2011008947

PATIENT
  Age: 50 Year
  Sex: Female

DRUGS (2)
  1. GLUCOCORTICOIDS [Concomitant]
  2. NPLATE [Suspect]
     Indication: IDIOPATHIC THROMBOCYTOPENIC PURPURA
     Dosage: 500 A?G, QWK
     Route: 058
     Dates: end: 20100601

REACTIONS (6)
  - PORTAL VEIN THROMBOSIS [None]
  - PLATELET COUNT INCREASED [None]
  - HEPATIC ENCEPHALOPATHY [None]
  - FLUID RETENTION [None]
  - MALAISE [None]
  - CHRONIC HEPATIC FAILURE [None]
